FAERS Safety Report 21515670 (Version 2)
Quarter: 2022Q4

REPORT INFORMATION
  Report Type: Report from Study
  Country: US (occurrence: US)
  Receive Date: 20221027
  Receipt Date: 20221208
  Transmission Date: 20230112
  Serious: Yes (Other)
  Sender: FDA-Public Use
  Company Number: US-GILEAD-2022-0585848

PATIENT
  Age: 70 Year
  Sex: Male
  Weight: 72.9 kg

DRUGS (4)
  1. REMDESIVIR [Suspect]
     Active Substance: REMDESIVIR
     Indication: COVID-19
     Dosage: 100 MG, QD
     Route: 042
     Dates: start: 20210406
  2. DORNASE ALFA [Suspect]
     Active Substance: DORNASE ALFA
     Indication: COVID-19
     Dosage: 5 MG, BID
     Route: 055
     Dates: start: 20210405
  3. DEXAMETHASONE [Concomitant]
     Active Substance: DEXAMETHASONE
     Dosage: LESS THAN OR EQUAL TO 8 MG QD; 5 CYCLES
  4. OXYGEN [Concomitant]
     Active Substance: OXYGEN
     Dosage: 90 %

REACTIONS (2)
  - Sepsis [Recovered/Resolved]
  - Blood alkaline phosphatase increased [Recovered/Resolved]

NARRATIVE: CASE EVENT DATE: 20210412
